FAERS Safety Report 5760913-5 (Version None)
Quarter: 2008Q2

REPORT INFORMATION
  Report Type: 
  Country: None (occurrence: None)
  Receive Date: 20080606
  Receipt Date: 20070904
  Transmission Date: 20081010
  Serious: No
  Sender: FDA-Public Use
  Company Number: US-ASTRAZENECA-2007UW20877

PATIENT
  Age: 43 Year
  Sex: Female
  Weight: 51.7 kg

DRUGS (10)
  1. PRILOSEC [Suspect]
     Indication: HIATUS HERNIA
     Route: 048
  2. PRILOSEC [Suspect]
     Indication: GASTROOESOPHAGEAL REFLUX DISEASE
     Route: 048
  3. ZANTAC [Concomitant]
  4. NAPROXEN [Concomitant]
  5. ASPIRIN [Concomitant]
  6. CYMBALTA [Concomitant]
  7. MAXAIR [Concomitant]
  8. FLOVENT [Concomitant]
  9. REQUIP [Concomitant]
  10. XANAX [Concomitant]

REACTIONS (2)
  - DRUG INEFFECTIVE [None]
  - WEIGHT DECREASED [None]
